FAERS Safety Report 6526043-X (Version None)
Quarter: 2010Q1

REPORT INFORMATION
  Report Type: 
  Country: None (occurrence: None)
  Receive Date: 20100104
  Receipt Date: 20091221
  Transmission Date: 20100710
  Serious: Yes (Hospitalization)
  Sender: FDA-Public Use
  Company Number: US-JNJFOC-20091206372

PATIENT
  Sex: Female
  Weight: 46.72 kg

DRUGS (11)
  1. REMICADE [Suspect]
     Route: 042
  2. REMICADE [Suspect]
     Route: 042
  3. REMICADE [Suspect]
     Indication: COLITIS ULCERATIVE
     Route: 042
  4. BENICAR [Concomitant]
     Indication: CARDIAC DISORDER
     Dosage: DOSE: 40/125 MG
  5. ASPIRIN [Concomitant]
     Indication: CARDIAC DISORDER
  6. DIGOXIN [Concomitant]
     Indication: CARDIAC DISORDER
  7. FOLIC ACID [Concomitant]
     Indication: COLITIS ULCERATIVE
  8. SULFASALAZINE [Concomitant]
     Indication: COLITIS ULCERATIVE
  9. DILTIAZEM [Concomitant]
     Indication: CARDIAC DISORDER
     Dosage: DURATION SINCE 2 YEARS AGO
  10. GLIPIZIDE AND METFORMIN HCL [Concomitant]
     Indication: DIABETES MELLITUS
     Dosage: DOSE 5MG/500 2 EVERYDAY FOR ABOUT 3 YEARS
  11. VITAMIN D [Concomitant]
     Indication: OSTEOPOROSIS
     Dosage: DURATION FOR ABOUT 2 YEARS

REACTIONS (2)
  - CARDIO-RESPIRATORY ARREST [None]
  - VOMITING [None]
